FAERS Safety Report 21095753 (Version 1)
Quarter: 2022Q3

REPORT INFORMATION
  Report Type: Spontaneous
  Country: US (occurrence: US)
  Receive Date: 20220718
  Receipt Date: 20220718
  Transmission Date: 20221027
  Serious: Yes (Hospitalization, Other)
  Sender: FDA-Public Use
  Company Number: US-MYLANLABS-2022M1079210

PATIENT
  Age: 3 Decade
  Sex: Male

DRUGS (11)
  1. VALPROIC ACID [Suspect]
     Active Substance: VALPROIC ACID
     Indication: Schizophrenia
     Dosage: UNK
     Route: 065
  2. LITHIUM [Suspect]
     Active Substance: LITHIUM
     Indication: Schizophrenia
     Dosage: 300 MILLIGRAM, BID
     Route: 065
  3. LITHIUM [Suspect]
     Active Substance: LITHIUM
     Dosage: 300 MILLIGRAM, QD
     Route: 065
  4. FLUPHENAZINE [Suspect]
     Active Substance: FLUPHENAZINE
     Indication: Schizophrenia
     Dosage: 25 MILLIGRAM, BIWEEKLY
     Route: 065
  5. CLOZARIL [Suspect]
     Active Substance: CLOZAPINE
     Indication: Schizophrenia
     Dosage: 50 MILLIGRAM, QD
     Route: 065
  6. HALDOL [Suspect]
     Active Substance: HALOPERIDOL
     Indication: Schizophrenia
     Dosage: UNK
     Route: 065
  7. INVEGA SUSTENNA [Suspect]
     Active Substance: PALIPERIDONE PALMITATE
     Indication: Schizophrenia
     Dosage: UNK
     Route: 065
  8. RISPERDAL [Suspect]
     Active Substance: RISPERIDONE
     Indication: Schizophrenia
     Dosage: UNK
     Route: 065
  9. COGENTIN [Suspect]
     Active Substance: BENZTROPINE MESYLATE
     Indication: Schizophrenia
     Dosage: 2 MILLIGRAM, PM, EVERY NIGHT
     Route: 065
  10. COGENTIN [Suspect]
     Active Substance: BENZTROPINE MESYLATE
     Dosage: 1 MILLIGRAM, PM, EVERY NIGHT
     Route: 065
  11. OLEPTRO [Suspect]
     Active Substance: TRAZODONE HYDROCHLORIDE
     Indication: Schizophrenia
     Dosage: 50 MILLIGRAM, PM, EVERY NIGHT
     Route: 065

REACTIONS (5)
  - Neuroleptic malignant syndrome [Recovering/Resolving]
  - Encephalopathy [Recovering/Resolving]
  - Paralysis [Recovering/Resolving]
  - Rhabdomyolysis [Recovering/Resolving]
  - Drug ineffective [Unknown]
